FAERS Safety Report 11325948 (Version 1)
Quarter: 2015Q3

REPORT INFORMATION
  Report Type: Spontaneous
  Country: US (occurrence: None)
  Receive Date: 20150729
  Receipt Date: 20150729
  Transmission Date: 20151125
  Serious: Yes (Death, Hospitalization)
  Sender: FDA-Public Use
  Company Number: INS201507-000312

PATIENT
  Age: 81 Year
  Sex: Male
  Weight: 54.43 kg

DRUGS (3)
  1. FENTANYL PATCH (FENTANYL) [Concomitant]
  2. CARVEDILOL. [Concomitant]
     Active Substance: CARVEDILOL
  3. SUBSYS [Suspect]
     Active Substance: FENTANYL
     Indication: CENTRAL PAIN SYNDROME
     Dosage: EVERY 4 HOURS

REACTIONS (3)
  - Cardiac failure [None]
  - Drug effect incomplete [None]
  - Off label use [None]

NARRATIVE: CASE EVENT DATE: 20150504
